FAERS Safety Report 26211542 (Version 1)
Quarter: 2025Q4

REPORT INFORMATION
  Report Type: Spontaneous
  Country: US (occurrence: US)
  Receive Date: 20251230
  Receipt Date: 20251230
  Transmission Date: 20260118
  Serious: No
  Sender: BAUSCH AND LOMB
  Company Number: US-BAUSCHBL-2025BNL034390

PATIENT
  Sex: Female

DRUGS (2)
  1. LOTEMAX [Suspect]
     Active Substance: LOTEPREDNOL ETABONATE
     Indication: Blepharitis
     Route: 047
     Dates: start: 2025
  2. LOTEMAX [Suspect]
     Active Substance: LOTEPREDNOL ETABONATE
     Indication: Periorbital inflammation

REACTIONS (2)
  - Drug ineffective [Unknown]
  - Product prescribing error [Unknown]

NARRATIVE: CASE EVENT DATE: 20250101
